FAERS Safety Report 8428998-5 (Version None)
Quarter: 2012Q2

REPORT INFORMATION
  Report Type: 
  Country: None (occurrence: None)
  Receive Date: 20120612
  Receipt Date: 20111005
  Transmission Date: 20120825
  Serious: No
  Sender: FDA-Public Use
  Company Number: US-COVIDIEN/TYCO HEALTHCARE/MALLINCKRODT-T201102330

PATIENT
  Age: 79 Year
  Sex: Male

DRUGS (2)
  1. ULTRA-TECHNEKOW [Concomitant]
     Indication: RADIOISOTOPE SCAN
     Dosage: UNK, SINGLE
     Dates: start: 20111003, end: 20111013
  2. ULTRATAG [Suspect]
     Indication: RADIOISOTOPE SCAN
     Dosage: UNK UNK, SINGLE
     Dates: start: 20111003, end: 20111003

REACTIONS (1)
  - DRUG INEFFECTIVE [None]
